FAERS Safety Report 9265198 (Version 5)
Quarter: 2013Q3

REPORT INFORMATION
  Report Type: Spontaneous
  Country: US (occurrence: US)
  Receive Date: 20130501
  Receipt Date: 20130903
  Transmission Date: 20140515
  Serious: Yes (Death, Hospitalization)
  Sender: FDA-Public Use
  Company Number: US-INCYTE CORPORATION-2013IN000863

PATIENT
  Age: 71 Year
  Sex: Female
  Weight: 48.62 kg

DRUGS (10)
  1. JAKAFI [Suspect]
     Indication: PLASMA CELL MYELOMA
     Dosage: 15 MG, BID
     Route: 048
     Dates: start: 20120224, end: 20130517
  2. JAKAFI [Suspect]
     Indication: POLYCYTHAEMIA VERA
  3. JAKAFI [Suspect]
     Indication: MYELOFIBROSIS
  4. FENTANYL [Suspect]
  5. DILAUDID [Concomitant]
  6. METHADONE [Concomitant]
  7. VALIUM [Concomitant]
  8. SYSTANE [Concomitant]
  9. BACTRIM [Concomitant]
  10. ACYCLOVIR [Concomitant]

REACTIONS (4)
  - Death [Fatal]
  - Vomiting [Unknown]
  - Pain [Unknown]
  - Drug ineffective [Unknown]
